FAERS Safety Report 10283639 (Version 1)
Quarter: 2014Q3

REPORT INFORMATION
  Report Type: Spontaneous
  Country: US (occurrence: None)
  Receive Date: 20140702
  Receipt Date: 20140702
  Transmission Date: 20150326
  Serious: Yes (Other)
  Sender: FDA-Public Use
  Company Number: None

PATIENT
  Age: 30 Year
  Sex: Female
  Weight: 62 kg

DRUGS (1)
  1. REMICADE [Suspect]
     Active Substance: INFLIXIMAB
     Indication: CROHN^S DISEASE
     Dosage: 0,2,6 THEN EVERY8 WKS
     Route: 042
     Dates: start: 20140516

REACTIONS (5)
  - Arthralgia [None]
  - Headache [None]
  - Hypersensitivity [None]
  - Rash [None]
  - Pyrexia [None]

NARRATIVE: CASE EVENT DATE: 20140630
